FAERS Safety Report 15982898 (Version 1)
Quarter: 2019Q1

REPORT INFORMATION
  Report Type: Spontaneous
  Country: US (occurrence: US)
  Receive Date: 20190219
  Receipt Date: 20190219
  Transmission Date: 20190418
  Serious: Yes (Other)
  Sender: FDA-Public Use
  Company Number: PHEH2019US006781

PATIENT
  Age: 4 Year
  Sex: Male

DRUGS (2)
  1. PAZOPANIB [Suspect]
     Active Substance: PAZOPANIB
     Indication: HEPATIC CANCER
     Route: 065
  2. RIBOCICLIB. [Suspect]
     Active Substance: RIBOCICLIB
     Indication: HEPATIC CANCER
     Route: 065

REACTIONS (3)
  - Hepatic cancer [Unknown]
  - Malignant neoplasm progression [Unknown]
  - Lung disorder [Unknown]
